APPROVED DRUG PRODUCT: SODIUM HEPARIN
Active Ingredient: HEPARIN SODIUM
Strength: 1,000 UNITS/ML
Dosage Form/Route: INJECTABLE;INJECTION
Application: N017036 | Product #001
Applicant: BAXTER HEALTHCARE CORP
Approved: Mar 4, 1988 | RLD: No | RS: No | Type: DISCN